FAERS Safety Report 6376851-3 (Version None)
Quarter: 2009Q3

REPORT INFORMATION
  Report Type: 
  Country: None (occurrence: None)
  Receive Date: 20090925
  Receipt Date: 20090921
  Transmission Date: 20100115
  Serious: Yes (Hospitalization, Other)
  Sender: FDA-Public Use
  Company Number: CA-ABBOTT-09P-028-0587371-00

PATIENT
  Sex: Female

DRUGS (3)
  1. HUMIRA [Suspect]
     Indication: CROHN'S DISEASE
     Route: 058
     Dates: start: 20090710
  2. HUMIRA [Suspect]
     Route: 058
     Dates: start: 20090724
  3. HUMIRA [Suspect]
     Route: 058

REACTIONS (3)
  - ABORTION INDUCED [None]
  - CROHN'S DISEASE [None]
  - DRUG INEFFECTIVE [None]
